FAERS Safety Report 5289554-3 (Version None)
Quarter: 2007Q1

REPORT INFORMATION
  Report Type: 
  Country: None (occurrence: None)
  Receive Date: 20070118
  Receipt Date: 20060929
  Transmission Date: 20070707
  Serious: Yes (Other)
  Sender: FDA-Public Use
  Company Number: HQWYE512111SEP06

PATIENT
  Age: 57 Year
  Sex: Female
  Weight: 63.56 kg

DRUGS (7)
  1. ADVIL PM [Suspect]
     Indication: INSOMNIA
     Dosage: 2 CAPLETS AS NEEDED, ORAL
     Route: 048
     Dates: start: 20060601, end: 20060101
  2. ADVIL PM [Suspect]
     Indication: PAIN
     Dosage: 2 CAPLETS AS NEEDED, ORAL
     Route: 048
     Dates: start: 20060601, end: 20060101
  3. DIOVAN [Concomitant]
  4. PROVENTIL (SALBUTAMOL SULFATE) [Concomitant]
  5. ADVAIR DISKUS 100/50 [Concomitant]
  6. NORVASC [Concomitant]
  7. PREVACID [Concomitant]

REACTIONS (1)
  - DRUG INEFFECTIVE [None]
